FAERS Safety Report 18571671 (Version 1)
Quarter: 2020Q4

REPORT INFORMATION
  Report Type: Spontaneous
  Country: CN (occurrence: CN)
  Receive Date: 20201202
  Receipt Date: 20201202
  Transmission Date: 20210114
  Serious: Yes (Other)
  Sender: FDA-Public Use
  Company Number: CN-009507513-2011CHN016460

PATIENT
  Age: 82 Year
  Sex: Male

DRUGS (3)
  1. INVANZ [Suspect]
     Active Substance: ERTAPENEM SODIUM
     Indication: PYREXIA
     Dosage: 1 GRAM, ONCE A DAY
     Route: 041
     Dates: start: 20201116, end: 20201116
  2. SODIUM CHLORIDE. [Concomitant]
     Active Substance: SODIUM CHLORIDE
     Indication: INFECTION
     Dosage: 100 MILLILITER, QD
     Route: 041
  3. INVANZ [Suspect]
     Active Substance: ERTAPENEM SODIUM
     Indication: INFECTION

REACTIONS (2)
  - Irritability [Recovering/Resolving]
  - Neurological symptom [Recovering/Resolving]

NARRATIVE: CASE EVENT DATE: 20201118
